FAERS Safety Report 8158139-3 (Version None)
Quarter: 2012Q1

REPORT INFORMATION
  Report Type: 
  Country: None (occurrence: None)
  Receive Date: 20120222
  Receipt Date: 20120214
  Transmission Date: 20120608
  Serious: Yes (Other)
  Sender: FDA-Public Use
  Company Number: PHHY2012AU011654

PATIENT
  Age: 64 Year
  Sex: Male

DRUGS (13)
  1. FENTANYL [Suspect]
     Indication: ANAESTHESIA
     Dosage: 100 MG, UNK
  2. DESFLURANE [Suspect]
     Indication: ANAESTHESIA
     Dosage: UNK UKN, UNK
  3. PARECOXIB SODIUM [Concomitant]
     Indication: ANALGESIC THERAPY
     Dosage: 40 MG, UNK
  4. ROCURONIUM BROMIDE [Concomitant]
     Indication: HYPOTONIA
     Dosage: 50 MG, UNK
  5. TRAMADOL HCL [Suspect]
     Indication: ANALGESIC THERAPY
     Dosage: 100 MG, UNK
  6. AMANTADINE HCL [Concomitant]
     Indication: PARKINSON'S DISEASE
     Dosage: 100 MG, BID
  7. MIDAZOLAM [Concomitant]
     Indication: ANAESTHESIA
  8. MORPHINE [Suspect]
     Indication: ANALGESIC THERAPY
     Dosage: 20 MG, UNK
  9. MIDAZOLAM [Concomitant]
     Indication: HYPOTONIA
     Dosage: 1 MG, UNK
  10. ACETAMINOPHEN [Concomitant]
     Indication: ANALGESIC THERAPY
     Dosage: 1 G, UNK
  11. CLONIDINE [Concomitant]
     Indication: PAIN
     Dosage: UNK UKN, UNK
  12. SINEMET [Concomitant]
     Indication: PARKINSON'S DISEASE
  13. PROPOFOL [Suspect]
     Indication: ANAESTHESIA
     Dosage: 110 MG, UNK

REACTIONS (5)
  - PARKINSON'S DISEASE [None]
  - MUSCLE RIGIDITY [None]
  - DYSPNOEA [None]
  - COGWHEEL RIGIDITY [None]
  - DYSPHAGIA [None]
